FAERS Safety Report 10563748 (Version 1)
Quarter: 2014Q4

REPORT INFORMATION
  Report Type: Spontaneous
  Country: US (occurrence: US)
  Receive Date: 20141104
  Receipt Date: 20141104
  Transmission Date: 20150529
  Serious: No
  Sender: FDA-Public Use
  Company Number: US-GLAXOSMITHKLINE-US2014GSK007998

PATIENT
  Sex: Female

DRUGS (1)
  1. ABREVA [Suspect]
     Active Substance: DOCOSANOL
     Indication: ORAL HERPES
     Dosage: UNK, BID

REACTIONS (5)
  - Herpes simplex [Unknown]
  - Skin ulcer [Unknown]
  - Lip ulceration [Unknown]
  - Drug administration error [Unknown]
  - Oral herpes [Unknown]
